FAERS Safety Report 24006412 (Version 1)
Quarter: 2024Q2

REPORT INFORMATION
  Report Type: Spontaneous
  Country: US (occurrence: US)
  Receive Date: 20240624
  Receipt Date: 20240624
  Transmission Date: 20240717
  Serious: No
  Sender: FDA-Public Use
  Company Number: US-INSUD PHARMA-2406US04831

PATIENT

DRUGS (1)
  1. SLYND [Suspect]
     Active Substance: DROSPIRENONE
     Indication: Ovarian cyst
     Dosage: UNKNOWN
     Route: 048

REACTIONS (2)
  - Nausea [Unknown]
  - Product use in unapproved indication [Unknown]

NARRATIVE: CASE EVENT DATE: 20240613
